FAERS Safety Report 15163234 (Version 1)
Quarter: 2018Q3

REPORT INFORMATION
  Report Type: Report from Study
  Country: ES (occurrence: ES)
  Receive Date: 20180718
  Receipt Date: 20180718
  Transmission Date: 20181010
  Serious: Yes (Other)
  Sender: FDA-Public Use
  Company Number: ES-UCBSA-2018009771

PATIENT
  Sex: Male

DRUGS (1)
  1. ROTIGOTINE [Suspect]
     Active Substance: ROTIGOTINE
     Indication: PARKINSON^S DISEASE
     Dosage: 8 MG, ONCE DAILY (QD)

REACTIONS (6)
  - Application site erythema [Unknown]
  - Intentional product misuse [Unknown]
  - Constipation [Recovered/Resolved]
  - Hypertension [Recovering/Resolving]
  - Pain in extremity [Recovering/Resolving]
  - Dysphagia [Recovering/Resolving]
